FAERS Safety Report 8990499 (Version 2)
Quarter: 2013Q1

REPORT INFORMATION
  Report Type: Report from Study
  Country: CA (occurrence: CA)
  Receive Date: 20121228
  Receipt Date: 20130131
  Transmission Date: 20140127
  Serious: Yes (Other)
  Sender: FDA-Public Use
  Company Number: CA-ROCHE-1167357

PATIENT
  Sex: Female
  Weight: 100 kg

DRUGS (2)
  1. OMALIZUMAB [Suspect]
     Indication: ASTHMA
     Route: 058
     Dates: start: 20080609
  2. OMALIZUMAB [Suspect]
     Route: 065
     Dates: start: 20091109

REACTIONS (9)
  - Asthma [Not Recovered/Not Resolved]
  - Contusion [Unknown]
  - Rhinitis [Unknown]
  - Hypersensitivity [Unknown]
  - Nasopharyngitis [Unknown]
  - Swelling [Unknown]
  - Fatigue [Unknown]
  - Headache [Unknown]
  - Drug ineffective [Unknown]
